FAERS Safety Report 10006820 (Version 2)
Quarter: 2015Q3

REPORT INFORMATION
  Report Type: Spontaneous
  Country: US (occurrence: US)
  Receive Date: 20140313
  Receipt Date: 20150813
  Transmission Date: 20151125
  Serious: No
  Sender: FDA-Public Use
  Company Number: US-GILEAD-2012-0065121

PATIENT
  Age: 51 Year
  Sex: Female

DRUGS (2)
  1. DEMADEX [Concomitant]
     Active Substance: TORSEMIDE
     Dosage: UNK
  2. LETAIRIS [Suspect]
     Active Substance: AMBRISENTAN
     Indication: PRODUCT USED FOR UNKNOWN INDICATION
     Dosage: 5 MG, QD
     Route: 048

REACTIONS (2)
  - Liver function test abnormal [Unknown]
  - Fluid retention [Unknown]
